FAERS Safety Report 9218684 (Version 1)
Quarter: 2013Q2

REPORT INFORMATION
  Report Type: Spontaneous
  Country: CA (occurrence: CA)
  Receive Date: 20130409
  Receipt Date: 20130409
  Transmission Date: 20140414
  Serious: Yes (Hospitalization)
  Sender: FDA-Public Use
  Company Number: CA-AMGEN-CANSP2012051417

PATIENT
  Age: 50 Year
  Sex: Female

DRUGS (6)
  1. ENBREL [Suspect]
     Indication: RHEUMATOID ARTHRITIS
     Dosage: 50 MG, QWK
     Dates: start: 20110201
  2. METHOTREXATE [Suspect]
     Dosage: UNK
  3. FOLIC ACID [Concomitant]
     Dosage: UNK
  4. ANAPRIL [Concomitant]
     Dosage: UNK
  5. ANBESOL                            /00104701/ [Concomitant]
     Dosage: UNK
  6. IBUPROFEN [Concomitant]
     Dosage: UNK

REACTIONS (5)
  - Hypersensitivity [Unknown]
  - Blister [Unknown]
  - Pruritus [Unknown]
  - Rash [Recovered/Resolved]
  - Contusion [Recovered/Resolved]
